FAERS Safety Report 5129540-7 (Version None)
Quarter: 2006Q4

REPORT INFORMATION
  Report Type: 
  Country: None (occurrence: None)
  Receive Date: 20061012
  Receipt Date: 20061003
  Transmission Date: 20070319
  Serious: Yes (Other)
  Sender: FDA-Public Use
  Company Number: 230689

PATIENT
  Age: 91 Year
  Sex: Female
  Weight: 52.2 kg

DRUGS (1)
  1. LUCENTIS [Suspect]
     Indication: MACULAR DEGENERATION
     Dosage: INTRAVITREAL
     Dates: start: 20060825

REACTIONS (2)
  - RETINAL TEAR [None]
  - VISUAL ACUITY REDUCED [None]
